FAERS Safety Report 4860652-9 (Version None)
Quarter: 2005Q4

REPORT INFORMATION
  Report Type: 
  Country: None (occurrence: None)
  Receive Date: 20051215
  Receipt Date: 20051130
  Transmission Date: 20060501
  Serious: Yes (Hospitalization)
  Sender: FDA-Public Use
  Company Number: CA-2005-016958

PATIENT
  Age: 58 Year
  Sex: Female

DRUGS (3)
  1. BETASERON [Suspect]
     Indication: RELAPSING-REMITTING MULTIPLE SCLEROSIS
     Dosage: 8 MIU, EVERY 2D, SUBCUTANEOUS
     Route: 058
     Dates: start: 19981130
  2. FOSAMAX [Concomitant]
  3. CALCIUM (CALCIUM) [Concomitant]

REACTIONS (2)
  - BREAST CANCER FEMALE [None]
  - PROCEDURAL PAIN [None]
